FAERS Safety Report 6810603-2 (Version None)
Quarter: 2010Q2

REPORT INFORMATION
  Report Type: 
  Country: None (occurrence: None)
  Receive Date: 20100630
  Receipt Date: 20100624
  Transmission Date: 20101027
  Serious: Yes (Other)
  Sender: FDA-Public Use
  Company Number: IE-BAXTER-2010BH013815

PATIENT
  Age: 56 Year
  Sex: Female
  Weight: 64 kg

DRUGS (14)
  1. SODIUM CHLORIDE 0.9% IN PLASTIC CONTAINER [Suspect]
     Indication: BREAST CANCER
     Route: 042
     Dates: start: 20100504, end: 20100504
  2. SODIUM CHLORIDE 0.9% IN PLASTIC CONTAINER [Suspect]
     Route: 042
     Dates: start: 20100504, end: 20100504
  3. SODIUM CHLORIDE 0.9% IN PLASTIC CONTAINER [Suspect]
     Route: 042
     Dates: start: 20100504, end: 20100504
  4. SODIUM CHLORIDE 0.9% IN PLASTIC CONTAINER [Suspect]
     Route: 042
     Dates: start: 20100504, end: 20100504
  5. SODIUM CHLORIDE 0.9% IN PLASTIC CONTAINER [Suspect]
     Route: 042
     Dates: start: 20100504, end: 20100504
  6. DOCETAXEL [Suspect]
     Indication: BREAST CANCER
     Route: 042
     Dates: start: 20100504, end: 20100504
  7. DOCETAXEL [Suspect]
     Route: 042
     Dates: start: 20100504, end: 20100504
  8. DOCETAXEL [Suspect]
     Route: 042
     Dates: start: 20100504, end: 20100504
  9. DOCETAXEL [Suspect]
     Route: 042
     Dates: start: 20100504, end: 20100504
  10. DOCETAXEL [Suspect]
     Route: 042
     Dates: start: 20100504, end: 20100504
  11. ALOXI [Concomitant]
     Indication: PROPHYLAXIS OF NAUSEA AND VOMITING
     Route: 042
     Dates: start: 20100504, end: 20100504
  12. DEXAMETHASONE [Concomitant]
     Indication: PREMEDICATION
     Route: 042
     Dates: start: 20100504, end: 20100504
  13. DEXAMETHASONE [Concomitant]
     Route: 048
     Dates: start: 20100504, end: 20100504
  14. MOTILIUM-M [Concomitant]
     Indication: PREMEDICATION
     Route: 048
     Dates: start: 20100504, end: 20100504

REACTIONS (4)
  - DYSPNOEA [None]
  - FLUSHING [None]
  - HYPERSENSITIVITY [None]
  - RASH [None]
